FAERS Safety Report 24982722 (Version 1)
Quarter: 2025Q1

REPORT INFORMATION
  Report Type: Spontaneous
  Country: BR (occurrence: BR)
  Receive Date: 20250218
  Receipt Date: 20250218
  Transmission Date: 20250409
  Serious: Yes (Hospitalization, Other)
  Sender: NOVARTIS
  Company Number: BR-002147023-NVSC2023BR173374

PATIENT
  Age: 64 Year
  Sex: Male
  Weight: 72 kg

DRUGS (1)
  1. GLIVEC [Suspect]
     Active Substance: IMATINIB MESYLATE
     Indication: Chronic myeloid leukaemia
     Dosage: 1 DOSAGE FORM, QD (30 COATED TABLET, 1 TABLET PER DAY)
     Route: 065
     Dates: start: 201806

REACTIONS (9)
  - Diverticulitis [Unknown]
  - Abdominal pain [Unknown]
  - Constipation [Unknown]
  - Gastrointestinal inflammation [Unknown]
  - Pain [Unknown]
  - Dyschezia [Unknown]
  - Flatulence [Unknown]
  - Renal disorder [Unknown]
  - Coronary artery disease [Unknown]

NARRATIVE: CASE EVENT DATE: 20230601
